FAERS Safety Report 4984533-5 (Version None)
Quarter: 2006Q2

REPORT INFORMATION
  Report Type: 
  Country: None (occurrence: None)
  Receive Date: 20060421
  Receipt Date: 20051202
  Transmission Date: 20061013
  Serious: Yes (Hospitalization)
  Sender: FDA-Public Use
  Company Number: R301390-171-J

PATIENT
  Age: 78 Year
  Sex: Male
  Weight: 59 kg

DRUGS (8)
  1. RABEPRAZOLE SODIUM [Suspect]
     Indication: REFLUX OESOPHAGITIS
     Dosage: 10 MG, 1 IN 1D, ORAL
     Route: 048
     Dates: start: 20040428, end: 20051202
  2. TAGAMET [Concomitant]
  3. PURSENNID (SENNA LEAF) [Concomitant]
  4. CERNILTON (CERNILTON) [Concomitant]
  5. PAROTIN (SALIVARY GLAND HORMONE) [Concomitant]
  6. CATALIN (PIRENOXINE) [Concomitant]
  7. ECOLICIN (ECOLICIN ^SANTEN^) [Concomitant]
  8. HARNAL D (TAMSULOSIN HYDROCHLORIDE) [Concomitant]

REACTIONS (1)
  - GASTRIC ADENOMA [None]
